FAERS Safety Report 12544168 (Version 3)
Quarter: 2016Q3

REPORT INFORMATION
  Report Type: Spontaneous
  Country: JP (occurrence: JP)
  Receive Date: 20160711
  Receipt Date: 20160920
  Transmission Date: 20161109
  Serious: No
  Sender: FDA-Public Use
  Company Number: JP-LUPIN PHARMACEUTICALS INC.-2016-02708

PATIENT
  Sex: Male

DRUGS (8)
  1. PRORNER [Concomitant]
     Active Substance: BERAPROST SODIUM
     Indication: PERIPHERAL VASCULAR DISORDER
     Route: 048
  2. MOHRUS TAPE [Concomitant]
     Active Substance: KETOPROFEN
     Indication: PERIPHERAL VASCULAR DISORDER
     Route: 062
  3. SAWACILLIN CAPSULE 250 [Concomitant]
     Active Substance: AMOXICILLIN
     Indication: HELICOBACTER INFECTION
     Route: 048
     Dates: start: 20150804, end: 20150810
  4. MAGMITT [Concomitant]
     Active Substance: MAGNESIUM OXIDE
     Indication: INSOMNIA
     Route: 048
  5. OMEPRAZOLE TABLET 20 MG [AMEL] [Suspect]
     Active Substance: OMEPRAZOLE
     Indication: HELICOBACTER INFECTION
     Route: 048
     Dates: start: 20150804, end: 20150810
  6. CLARITHROMYCIN TABLET 200 MG (TAKATA) [Concomitant]
     Active Substance: CLARITHROMYCIN
     Indication: HELICOBACTER INFECTION
     Route: 048
     Dates: start: 20150804, end: 20150810
  7. URINORM [Concomitant]
     Active Substance: BENZBROMARONE
     Indication: HYPERURICAEMIA
     Route: 048
  8. GOODMIN [Concomitant]
     Active Substance: BROTIZOLAM
     Indication: CONSTIPATION
     Route: 048

REACTIONS (1)
  - Rash [Recovered/Resolved]

NARRATIVE: CASE EVENT DATE: 20150810
